FAERS Safety Report 15702340 (Version 1)
Quarter: 2018Q4

REPORT INFORMATION
  Report Type: Report from Study
  Country: GB (occurrence: GB)
  Receive Date: 20181210
  Receipt Date: 20181210
  Transmission Date: 20190205
  Serious: Yes (Hospitalization)
  Sender: FDA-Public Use
  Company Number: GB-ROCHE-2167737

PATIENT
  Sex: Female

DRUGS (1)
  1. ROACTEMRA [Suspect]
     Active Substance: TOCILIZUMAB
     Indication: RHEUMATOID ARTHRITIS
     Route: 058
     Dates: start: 20180405

REACTIONS (10)
  - Nerve compression [Unknown]
  - Hyperthyroidism [Unknown]
  - Lower respiratory tract infection [Unknown]
  - Rheumatoid arthritis [Unknown]
  - Cough [Unknown]
  - Nasal dryness [Unknown]
  - Foreign body aspiration [Unknown]
  - Dry mouth [Unknown]
  - Gastric infection [Unknown]
  - Mouth ulceration [Unknown]
